FAERS Safety Report 6399314-8 (Version None)
Quarter: 2009Q4

REPORT INFORMATION
  Report Type: 
  Country: None (occurrence: None)
  Receive Date: 20091014
  Receipt Date: 20071121
  Transmission Date: 20100525
  Serious: Yes (Death, Hospitalization, Other)
  Sender: FDA-Public Use
  Company Number: US-ASTRAZENECA-2006UW21593

PATIENT
  Age: 49 Year
  Sex: Female
  Weight: 131.1 kg

DRUGS (38)
  1. SEROQUEL [Suspect]
     Indication: SCHIZOPHRENIA
     Route: 048
  2. SEROQUEL [Suspect]
     Indication: DEPRESSION
     Route: 048
  3. ZOLOFT [Concomitant]
     Dates: start: 19970711
  4. SYNTHROID [Concomitant]
     Dosage: 0.05-0.075 MG DAILY
     Dates: start: 19970711
  5. ALTACE [Concomitant]
     Dates: start: 20010913
  6. LOPRESSOR [Concomitant]
     Dates: start: 20010913
  7. WELLBUTRIN SR [Concomitant]
     Dates: start: 20010210
  8. PLAVIX [Concomitant]
     Dates: start: 20010815
  9. TRAZODONE [Concomitant]
  10. LASIX [Concomitant]
     Dates: start: 20040316
  11. INSULIN [Concomitant]
     Dates: start: 19970711
  12. ASPIRIN [Concomitant]
     Dates: start: 20010815
  13. DEMADEX [Concomitant]
     Dosage: 20-40 MG DAILY
     Dates: start: 19970711
  14. VASOTEC [Concomitant]
     Dosage: 2-200 MG DAILY
     Dates: start: 19970711
  15. CHROMAGEN FA [Concomitant]
     Dosage: 1 DAILY
     Dates: start: 20010913
  16. CARDIZEM CD [Concomitant]
     Dates: start: 19970711
  17. ULTRAM [Concomitant]
     Indication: PAIN IN EXTREMITY
     Dosage: 50 MG EVERY 6 HOURS, 50 MG THREE TIMES A DAY
     Dates: start: 20010210
  18. AXID [Concomitant]
     Dosage: 150-300 MG DAILY
     Dates: start: 19970711
  19. K-DUR [Concomitant]
     Dosage: 10-20 MEQ DAILY
     Dates: start: 19970711
  20. ESTRADIOL [Concomitant]
     Dosage: 0.5 MG PATCH BIWEEKLY, 0.5 MG DAILY
     Dates: start: 19990316
  21. DAYPRO [Concomitant]
     Dates: start: 19990316
  22. LOTRISONE [Concomitant]
     Dosage: TOPICALLY TWO TIMES A DAY
     Route: 061
     Dates: start: 20010913
  23. KEFLEX [Concomitant]
  24. REZULIN [Concomitant]
     Dates: start: 19970711
  25. DARVOCET-N 100 [Concomitant]
     Dosage: 100 AS REQUIRED
     Dates: start: 20010210, end: 20010815
  26. TOPAMAX [Concomitant]
  27. DESYREL [Concomitant]
  28. LANTUS [Concomitant]
  29. REGLAN [Concomitant]
  30. BENADRYL [Concomitant]
  31. BUSPAR [Concomitant]
     Dosage: 10-30 MG DAILY
     Dates: start: 19970711
  32. CIPRO [Concomitant]
  33. FOLIC ACID [Concomitant]
  34. NEURONTIN [Concomitant]
     Indication: PAIN IN EXTREMITY
     Dosage: 100-300 MG DAILY
     Dates: start: 20010904
  35. HUMULIN 70/30 [Concomitant]
     Dosage: 7-100 UNITS DAILY
     Dates: start: 19970911
  36. NITROGLYCERIN [Concomitant]
     Dates: start: 19990316
  37. AMITRIPTYLINE [Concomitant]
     Dates: start: 20010815
  38. NOVOLIN 70/30 [Concomitant]
     Dosage: 40-60 UNITS DAILY
     Dates: start: 19970711

REACTIONS (40)
  - ACUTE PRERENAL FAILURE [None]
  - ANGINA PECTORIS [None]
  - ANGINA UNSTABLE [None]
  - AZOTAEMIA [None]
  - CARDIAC FAILURE CONGESTIVE [None]
  - CATHETERISATION CARDIAC [None]
  - CHEST PAIN [None]
  - CONVULSION [None]
  - CORONARY ARTERY DISEASE [None]
  - DEHYDRATION [None]
  - DIABETES MELLITUS [None]
  - DIABETES MELLITUS INADEQUATE CONTROL [None]
  - DIABETIC HYPEROSMOLAR COMA [None]
  - DIABETIC RETINOPATHY [None]
  - DIARRHOEA [None]
  - DIVERTICULITIS [None]
  - DYSPNOEA [None]
  - EROSIVE OESOPHAGITIS [None]
  - ESCHERICHIA URINARY TRACT INFECTION [None]
  - HEADACHE [None]
  - HEART INJURY [None]
  - HYPERTHYROIDISM [None]
  - INSULIN-REQUIRING TYPE 2 DIABETES MELLITUS [None]
  - IRON DEFICIENCY [None]
  - LUMBAR VERTEBRAL FRACTURE [None]
  - MUSCULAR WEAKNESS [None]
  - MYOCARDIAL INFARCTION [None]
  - MYOCARDIAL ISCHAEMIA [None]
  - NEUROPATHY PERIPHERAL [None]
  - OESOPHAGEAL STENOSIS [None]
  - OSTEOARTHRITIS [None]
  - OVARIAN NEOPLASM [None]
  - PERIPHERAL SENSORIMOTOR NEUROPATHY [None]
  - REFLUX OESOPHAGITIS [None]
  - RENAL FAILURE [None]
  - SUICIDAL IDEATION [None]
  - THROAT TIGHTNESS [None]
  - TRAUMATIC BRAIN INJURY [None]
  - TYPE 1 DIABETES MELLITUS [None]
  - WOUND ABSCESS [None]
